FAERS Safety Report 25522263 (Version 2)
Quarter: 2025Q3

REPORT INFORMATION
  Report Type: Spontaneous
  Country: US (occurrence: US)
  Receive Date: 20250707
  Receipt Date: 20250809
  Transmission Date: 20251020
  Serious: Yes (Other)
  Sender: ALEXION PHARMACEUTICALS
  Company Number: US-AstraZeneca-CH-00903409A

PATIENT

DRUGS (7)
  1. SAPHNELO [Suspect]
     Active Substance: ANIFROLUMAB-FNIA
     Route: 065
  2. SAPHNELO [Suspect]
     Active Substance: ANIFROLUMAB-FNIA
     Route: 065
  3. SAPHNELO [Suspect]
     Active Substance: ANIFROLUMAB-FNIA
     Route: 065
  4. SAPHNELO [Suspect]
     Active Substance: ANIFROLUMAB-FNIA
     Route: 065
  5. SAPHNELO [Suspect]
     Active Substance: ANIFROLUMAB-FNIA
     Route: 065
  6. SAPHNELO [Suspect]
     Active Substance: ANIFROLUMAB-FNIA
     Route: 065
  7. BENLYSTA [Concomitant]
     Active Substance: BELIMUMAB
     Route: 065

REACTIONS (2)
  - Systemic lupus erythematosus [Unknown]
  - Inability to afford medication [Unknown]

NARRATIVE: CASE EVENT DATE: 20250701
